FAERS Safety Report 4870310-2 (Version None)
Quarter: 2005Q4

REPORT INFORMATION
  Report Type: 
  Country: None (occurrence: None)
  Receive Date: 20051228
  Receipt Date: 20051213
  Transmission Date: 20060501
  Serious: Yes (Other)
  Sender: FDA-Public Use
  Company Number: BR-2005-026433

PATIENT
  Age: 40 Year
  Sex: Female

DRUGS (1)
  1. BETAFERON(INTERFERON BETA-1B) BETAFERON (INTERFERON BETA-1B) INJECTION [Suspect]
     Indication: MULTIPLE SCLEROSIS
     Dosage: 8 MIU, SUBCUTANEOUS
     Route: 058
     Dates: start: 20051205

REACTIONS (5)
  - CHILLS [None]
  - HEADACHE [None]
  - HYPOACUSIS [None]
  - PAIN [None]
  - PYREXIA [None]
